FAERS Safety Report 9463039 (Version 2)
Quarter: 2013Q3

REPORT INFORMATION
  Report Type: Spontaneous
  Country: DE (occurrence: DE)
  Receive Date: 20130816
  Receipt Date: 20130816
  Transmission Date: 20140515
  Serious: Yes (Other)
  Sender: FDA-Public Use
  Company Number: DE-GILEAD-2013-0077270

PATIENT
  Age: 89 Year
  Sex: Female

DRUGS (15)
  1. RANOLAZINE [Suspect]
     Indication: ANGINA PECTORIS
     Dosage: 375 MG, BID
     Route: 048
     Dates: start: 20130515
  2. HUMALOG [Suspect]
     Indication: TYPE 2 DIABETES MELLITUS
     Dosage: 4 IU, QD
     Route: 058
     Dates: start: 201302
  3. PENTALONG [Concomitant]
     Dosage: 2 DF, QD
  4. LANTUS [Concomitant]
     Dosage: 20 IU, UNK
  5. L-THYROXIN [Concomitant]
     Dosage: 125 ?G, QD
  6. PANTOPRAZOLE [Concomitant]
     Dosage: 40 MG, QD
  7. TORASEMID [Concomitant]
     Dosage: 40 MG, BID
  8. METOPROLOL [Concomitant]
     Indication: ARRHYTHMIA
     Dosage: 2 DF, QD
  9. AMLODIPINE [Concomitant]
     Dosage: 5 MG, QD
  10. MAGNESIUM [Concomitant]
     Dosage: 1 DF, QD
  11. CALCIUM [Concomitant]
     Dosage: 1 DF, QD
  12. VENOSTASIN                         /00097701/ [Concomitant]
     Dosage: 1 DF, QD
  13. ACETYLSALICYLIC ACID [Concomitant]
     Dosage: 100 MG, UNK
  14. CELEBREX [Concomitant]
  15. XIPAMIDE [Concomitant]

REACTIONS (3)
  - Blood glucose decreased [Recovered/Resolved]
  - Hyperhidrosis [Recovered/Resolved]
  - Tremor [Recovered/Resolved]
